FAERS Safety Report 4770755-5 (Version None)
Quarter: 2005Q3

REPORT INFORMATION
  Report Type: 
  Country: None (occurrence: None)
  Receive Date: 20050914
  Receipt Date: 20050905
  Transmission Date: 20060218
  Serious: Yes (Other)
  Sender: FDA-Public Use
  Company Number: 2005125284

PATIENT
  Age: 28 Year
  Sex: Female

DRUGS (1)
  1. DEPO-CLINOVIR (MEDROXYPROGESTERONE ACETATE) [Suspect]
     Indication: CONTRACEPTION
     Dosage: FIRST INJECTION, INTRAMSUCULAR
     Route: 030
     Dates: start: 20011101, end: 20011101

REACTIONS (1)
  - MULTIPLE SCLEROSIS [None]
